FAERS Safety Report 13556922 (Version 2)
Quarter: 2023Q1

REPORT INFORMATION
  Report Type: Spontaneous
  Country: RS (occurrence: RS)
  Receive Date: 20170518
  Receipt Date: 20230119
  Transmission Date: 20230418
  Serious: Yes (Death, Hospitalization, Other)
  Sender: FDA-Public Use
  Company Number: None

PATIENT
  Age: 56 Year
  Sex: Female

DRUGS (7)
  1. VANCOMYCIN [Suspect]
     Active Substance: VANCOMYCIN
     Indication: Pneumonia
     Dosage: 1 G, EVERY 12 HRS (AMPOULE)
     Route: 065
  2. VANCOMYCIN [Suspect]
     Active Substance: VANCOMYCIN
     Indication: Clostridium difficile infection
     Dosage: 125 MILLIGRAM, EVERY 6 HRS
     Route: 048
  3. AZITHROMYCIN [Suspect]
     Active Substance: AZITHROMYCIN
     Indication: Pneumonia
     Dosage: 500 MG, EVERY 12 HRS
     Route: 065
  4. MEROPENEM [Suspect]
     Active Substance: MEROPENEM
     Indication: Pneumonia
     Dosage: 1 G, EVERY 8 HOURS
     Route: 065
  5. LEVOFLOXACIN [Suspect]
     Active Substance: LEVOFLOXACIN
     Indication: Pneumonia
     Dosage: 500 MG, EVERY 24 HOURS
     Route: 065
  6. AMIKACIN [Suspect]
     Active Substance: AMIKACIN
     Indication: Pneumonia
     Dosage: 500 MG, EVERY 24 HOURS
     Route: 065
  7. METRONIDAZOLE [Suspect]
     Active Substance: METRONIDAZOLE
     Indication: Clostridium difficile infection
     Dosage: 500 MILLIGRAM, EVERY 8 HOURS
     Route: 042

REACTIONS (16)
  - Clostridium difficile infection [Fatal]
  - Multiple organ dysfunction syndrome [Fatal]
  - Megacolon [Fatal]
  - Lactic acidosis [Fatal]
  - Metabolic acidosis [Fatal]
  - Abdominal distension [Unknown]
  - Tachycardia [Unknown]
  - General physical health deterioration [Unknown]
  - Pallor [Unknown]
  - Haemodynamic instability [Unknown]
  - Dehydration [Unknown]
  - Abdominal pain [Unknown]
  - Vomiting [Unknown]
  - Diarrhoea [Unknown]
  - Nausea [Unknown]
  - Off label use [Unknown]
